FAERS Safety Report 7325885-0 (Version None)
Quarter: 2011Q1

REPORT INFORMATION
  Report Type: 
  Country: None (occurrence: None)
  Receive Date: 20110302
  Receipt Date: 20110217
  Transmission Date: 20110831
  Serious: Yes (Other)
  Sender: FDA-Public Use
  Company Number: PHHY2011BR13358

PATIENT
  Sex: Male
  Weight: 98 kg

DRUGS (2)
  1. RASILEZ [Suspect]
     Indication: HYPERTENSION
     Dosage: 300 MG IN THE MORNING
     Route: 048
  2. DIOVAN [Suspect]
     Indication: HYPERTENSION
     Dosage: 320 MG, 1 TABLET DAILY
     Route: 048

REACTIONS (5)
  - INFARCTION [None]
  - BLOOD PRESSURE INCREASED [None]
  - ARTERIAL OCCLUSIVE DISEASE [None]
  - NERVOUSNESS [None]
  - OVERWEIGHT [None]
